FAERS Safety Report 15279846 (Version 1)
Quarter: 2018Q3

REPORT INFORMATION
  Report Type: Spontaneous
  Country: GB (occurrence: GB)
  Receive Date: 20180815
  Receipt Date: 20180815
  Transmission Date: 20181010
  Serious: Yes (Other)
  Sender: FDA-Public Use
  Company Number: GB-PFIZER INC-2018322904

PATIENT
  Age: 34 Year
  Sex: Male
  Weight: 84 kg

DRUGS (3)
  1. SERTRALINE HCL [Suspect]
     Active Substance: SERTRALINE HYDROCHLORIDE
     Dosage: UNK
     Dates: start: 20180710
  2. ZOPICLONE [Concomitant]
     Active Substance: ZOPICLONE
     Dosage: 1 DF, 1X/DAY AT NIGHT. HIGHLY ADDICTIVE.
     Dates: start: 20180612, end: 20180626
  3. PAROXETINE. [Concomitant]
     Active Substance: PAROXETINE
     Dosage: 1 DF, 1X/DAY
     Dates: start: 20180207, end: 20180612

REACTIONS (3)
  - Condition aggravated [Recovered/Resolved]
  - Nausea [Unknown]
  - Anxiety [Recovered/Resolved]

NARRATIVE: CASE EVENT DATE: 201807
